FAERS Safety Report 5330230-6 (Version None)
Quarter: 2007Q2

REPORT INFORMATION
  Report Type: 
  Country: None (occurrence: None)
  Receive Date: 20070521
  Receipt Date: 20070510
  Transmission Date: 20071010
  Serious: Yes (Hospitalization)
  Sender: FDA-Public Use
  Company Number: AU-AMGEN-US214812

PATIENT
  Sex: Male

DRUGS (15)
  1. PANITUMUMAB [Suspect]
     Indication: COLORECTAL CANCER
     Route: 042
     Dates: start: 20070227, end: 20070227
  2. FLUOROURACIL [Suspect]
     Route: 042
     Dates: start: 20070227, end: 20070227
  3. LEUCOVORIN CALCIUM [Suspect]
     Route: 042
     Dates: start: 20070227, end: 20070227
  4. IRINOTECAN HCL [Suspect]
     Route: 042
     Dates: start: 20070227, end: 20070227
  5. LIPITOR [Concomitant]
     Route: 048
     Dates: start: 20060703
  6. LOPERAMIDE HCL [Concomitant]
     Route: 048
     Dates: start: 20070227
  7. NOTEN [Concomitant]
     Route: 048
     Dates: start: 20060703
  8. PERINDOPRIL ERBUMINE [Concomitant]
     Route: 048
     Dates: start: 20060703
  9. MAXOLON [Concomitant]
     Route: 048
     Dates: start: 20060810
  10. ASPIRIN [Concomitant]
     Route: 048
     Dates: start: 20010212
  11. PANADOL [Concomitant]
     Route: 048
     Dates: start: 20060810
  12. DEXAMETHASONE 0.5MG TAB [Concomitant]
     Route: 042
     Dates: start: 20070227, end: 20070227
  13. NAVOBAN [Concomitant]
     Route: 042
     Dates: start: 20070227, end: 20070227
  14. ATROPINE [Concomitant]
     Route: 042
     Dates: start: 20070227, end: 20070227
  15. MAXOLON [Concomitant]
     Route: 042
     Dates: start: 20070227, end: 20070227

REACTIONS (1)
  - SEPSIS [None]
